FAERS Safety Report 9435133 (Version 1)
Quarter: 2013Q3

REPORT INFORMATION
  Report Type: Spontaneous
  Country: US (occurrence: US)
  Receive Date: 20130801
  Receipt Date: 20130801
  Transmission Date: 20140515
  Serious: Yes (Other)
  Sender: FDA-Public Use
  Company Number: US-BAYER-2013-090772

PATIENT
  Age: 42 Year
  Sex: Female
  Weight: 131.52 kg

DRUGS (7)
  1. MIRENA [Suspect]
     Indication: PRODUCT USED FOR UNKNOWN INDICATION
     Dosage: UNK
     Route: 015
     Dates: start: 20130603
  2. LUPRON [Suspect]
     Indication: ENDOMETRIOSIS
     Dosage: 1 DF, Q3MON
     Dates: start: 20130318
  3. AGESTIN-ED [Concomitant]
     Dosage: 5 MG, QD
     Dates: start: 20130318, end: 201304
  4. HYDROCHLOROTHIAZIDE [Concomitant]
     Indication: HYPERTENSION
     Dosage: UNK
  5. NORVASC [Concomitant]
     Indication: HYPERTENSION
     Dosage: UNK
  6. SINGULAIR [Concomitant]
     Indication: ASTHMA
     Dosage: UNK
  7. ZYRTEC [Concomitant]
     Indication: SEASONAL ALLERGY
     Dosage: UNK

REACTIONS (5)
  - Vaginal haemorrhage [None]
  - Polymenorrhoea [None]
  - Abdominal distension [None]
  - Acne [None]
  - Hunger [None]
